FAERS Safety Report 7711580-2 (Version None)
Quarter: 2011Q3

REPORT INFORMATION
  Report Type: 
  Country: None (occurrence: None)
  Receive Date: 20110826
  Receipt Date: 20110503
  Transmission Date: 20111222
  Serious: Yes (Other)
  Sender: FDA-Public Use
  Company Number: US-BRISTOL-MYERS SQUIBB COMPANY-14956890

PATIENT
  Age: 51 Year
  Sex: Female

DRUGS (5)
  1. SIMAVASTATIN [Suspect]
  2. ONGLYZA [Suspect]
  3. PROAIR HFA [Concomitant]
  4. TENORMIN [Concomitant]
  5. AZOR [Concomitant]

REACTIONS (2)
  - PRURITUS [None]
  - SWELLING FACE [None]
